FAERS Safety Report 7170394-5 (Version None)
Quarter: 2010Q4

REPORT INFORMATION
  Report Type: 
  Country: None (occurrence: None)
  Receive Date: 20101217
  Receipt Date: 20101108
  Transmission Date: 20110411
  Serious: No
  Sender: FDA-Public Use
  Company Number: A0891352A

PATIENT
  Sex: Male

DRUGS (1)
  1. PROMACTA [Suspect]
     Dosage: 50MG PER DAY
     Route: 048
     Dates: start: 20100909

REACTIONS (1)
  - TREATMENT NONCOMPLIANCE [None]
